FAERS Safety Report 6837054-9 (Version None)
Quarter: 2010Q3

REPORT INFORMATION
  Report Type: 
  Country: None (occurrence: None)
  Receive Date: 20100713
  Receipt Date: 20070503
  Transmission Date: 20110219
  Serious: Yes (Other)
  Sender: FDA-Public Use
  Company Number: US-PFIZER INC-2007037801

PATIENT
  Sex: Female
  Weight: 72.6 kg

DRUGS (2)
  1. CHANTIX [Suspect]
     Indication: SMOKING CESSATION THERAPY
     Dosage: DAILY
     Dates: start: 20070203
  2. ATENOLOL [Concomitant]
     Indication: HYPERTENSION
     Dosage: DAILY

REACTIONS (2)
  - BLOOD PRESSURE INCREASED [None]
  - NERVOUSNESS [None]
